FAERS Safety Report 6783175-9 (Version None)
Quarter: 2010Q2

REPORT INFORMATION
  Report Type: 
  Country: None (occurrence: None)
  Receive Date: 20100622
  Receipt Date: 20100614
  Transmission Date: 20101027
  Serious: Yes (Other)
  Sender: FDA-Public Use
  Company Number: US-PFIZER INC-2010074314

PATIENT
  Sex: Male

DRUGS (2)
  1. VFEND [Suspect]
     Indication: MYCETOMA MYCOTIC
     Dosage: 300 MG, 2X/DAY
  2. TRIMETHOPRIM + SULFAMETHOXAZOLE [Suspect]

REACTIONS (3)
  - FATIGUE [None]
  - MALAISE [None]
  - SUNBURN [None]
